FAERS Safety Report 5735398-5 (Version None)
Quarter: 2008Q2

REPORT INFORMATION
  Report Type: 
  Country: None (occurrence: None)
  Receive Date: 20080508
  Receipt Date: 20080508
  Transmission Date: 20081010
  Serious: Yes (Other)
  Sender: FDA-Public Use
  Company Number: None

PATIENT
  Age: 60 Year
  Sex: Female
  Weight: 128.368 kg

DRUGS (2)
  1. SINGULAIR [Suspect]
     Indication: ASTHMA
     Dosage: 10 ML 1 OR 2 TIMES A DAY
     Dates: start: 19970110, end: 20060915
  2. SINGULAIR [Suspect]
     Indication: MULTIPLE ALLERGIES
     Dosage: 10 ML 1 OR 2 TIMES A DAY
     Dates: start: 19970110, end: 20060915

REACTIONS (2)
  - DEPRESSION [None]
  - LUNG INFECTION [None]
